FAERS Safety Report 24465611 (Version 1)
Quarter: 2024Q4

REPORT INFORMATION
  Report Type: Report from Study
  Country: US (occurrence: US)
  Receive Date: 20241018
  Receipt Date: 20241018
  Transmission Date: 20250114
  Serious: No
  Sender: ROCHE
  Company Number: US-ROCHE-3535902

PATIENT
  Age: 62 Year
  Sex: Male
  Weight: 134.72 kg

DRUGS (2)
  1. XOLAIR [Suspect]
     Active Substance: OMALIZUMAB
     Indication: Asthma
     Route: 058
     Dates: start: 202306, end: 202309
  2. XOLAIR [Suspect]
     Active Substance: OMALIZUMAB

REACTIONS (4)
  - Off label use [Unknown]
  - Dyspnoea [Unknown]
  - Fatigue [Unknown]
  - Sleep disorder [Unknown]
